FAERS Safety Report 4394138-5 (Version None)
Quarter: 2004Q3

REPORT INFORMATION
  Report Type: 
  Country: None (occurrence: None)
  Receive Date: 20040708
  Receipt Date: 20040708
  Transmission Date: 20050211
  Serious: No
  Sender: FDA-Public Use
  Company Number: None

PATIENT
  Age: 52 Year
  Sex: Male

DRUGS (2)
  1. PIROXICAM [Suspect]
     Indication: BACK PAIN
     Dosage: PO QD
     Route: 048
  2. PIROXICAM [Suspect]
     Indication: SPINAL COLUMN STENOSIS
     Dosage: PO QD
     Route: 048

REACTIONS (3)
  - OEDEMA [None]
  - RASH GENERALISED [None]
  - URTICARIA [None]
